FAERS Safety Report 10622053 (Version 1)
Quarter: 2014Q4

REPORT INFORMATION
  Report Type: Spontaneous
  Country: US (occurrence: None)
  Receive Date: 20141201
  Receipt Date: 20141201
  Transmission Date: 20150529
  Serious: No
  Sender: FDA-Public Use
  Company Number: None

PATIENT
  Age: 72 Year
  Sex: Male
  Weight: 58 kg

DRUGS (2)
  1. PHYTONADIONE. [Suspect]
     Active Substance: PHYTONADIONE
     Indication: ACTIVATED PARTIAL THROMBOPLASTIN TIME PROLONGED
     Route: 042
     Dates: start: 20130408, end: 20130408
  2. PHYTONADIONE. [Suspect]
     Active Substance: PHYTONADIONE
     Indication: ACTIVATED PARTIAL THROMBOPLASTIN TIME PROLONGED
     Route: 042
     Dates: start: 20130408, end: 20130408

REACTIONS (3)
  - Dyspnoea [None]
  - Chest pain [None]
  - Dizziness [None]

NARRATIVE: CASE EVENT DATE: 20130408
